FAERS Safety Report 5181839-4 (Version None)
Quarter: 2006Q4

REPORT INFORMATION
  Report Type: 
  Country: None (occurrence: None)
  Receive Date: 20061220
  Receipt Date: 20060314
  Transmission Date: 20070319
  Serious: No
  Sender: FDA-Public Use
  Company Number: US-GLAXOSMITHKLINE-A0597431A

PATIENT
  Age: 53 Year
  Sex: Male

DRUGS (4)
  1. COMMIT [Suspect]
  2. COMMIT [Suspect]
  3. NICORETTE (MINT) [Suspect]
  4. ANTIDEPRESSANT [Concomitant]

REACTIONS (5)
  - COLD SWEAT [None]
  - DRUG WITHDRAWAL SYNDROME [None]
  - HYPERHIDROSIS [None]
  - INTENTIONAL DRUG MISUSE [None]
  - MALAISE [None]
